FAERS Safety Report 8203254-9 (Version None)
Quarter: 2012Q1

REPORT INFORMATION
  Report Type: 
  Country: None (occurrence: None)
  Receive Date: 20120312
  Receipt Date: 20120302
  Transmission Date: 20120608
  Serious: Yes (Other)
  Sender: FDA-Public Use
  Company Number: US-ASTRAZENECA-2012SE15280

PATIENT
  Age: 58 Year
  Sex: Female

DRUGS (1)
  1. SYMBICORT [Suspect]
     Route: 055

REACTIONS (4)
  - RESPIRATORY DISORDER [None]
  - MALAISE [None]
  - PNEUMONIA LEGIONELLA [None]
  - APPARENT DEATH [None]
